FAERS Safety Report 24951753 (Version 1)
Quarter: 2025Q1

REPORT INFORMATION
  Report Type: Spontaneous
  Country: US (occurrence: US)
  Receive Date: 20250210
  Receipt Date: 20250210
  Transmission Date: 20250409
  Serious: No
  Sender: PFIZER
  Company Number: US-TAKEDA-2025TUS013169

PATIENT
  Age: 67 Year
  Sex: Female
  Weight: 71.2 kg

DRUGS (3)
  1. PROTONIX [Suspect]
     Active Substance: PANTOPRAZOLE SODIUM
     Route: 065
  2. VOQUEZNA [Suspect]
     Active Substance: VONOPRAZAN FUMARATE
     Indication: Gastrooesophageal reflux disease
     Dosage: 10 MILLIGRAM, QD
     Route: 048
  3. LUBIPROSTONE [Concomitant]
     Active Substance: LUBIPROSTONE

REACTIONS (1)
  - Diarrhoea [Unknown]
